FAERS Safety Report 6186909-X (Version None)
Quarter: 2009Q2

REPORT INFORMATION
  Report Type: 
  Country: None (occurrence: None)
  Receive Date: 20090512
  Receipt Date: 20090428
  Transmission Date: 20091009
  Serious: Yes (Death, Life-Threatening, Hospitalization)
  Sender: FDA-Public Use
  Company Number: JP-BAYER-200910741BYL

PATIENT
  Age: 62 Year
  Sex: Female
  Weight: 48 kg

DRUGS (8)
  1. FLUDARA [Suspect]
     Indication: ADULT T-CELL LYMPHOMA/LEUKAEMIA
     Dosage: AS USED: 30 MG/M2  UNIT DOSE: 50 MG
     Route: 041
     Dates: start: 20080828, end: 20080902
  2. ALKERAN [Concomitant]
     Indication: ADULT T-CELL LYMPHOMA/LEUKAEMIA
     Dosage: AS USED: 40 MG/M2
     Route: 042
     Dates: start: 20080829, end: 20080831
  3. CYMERIN [Concomitant]
     Indication: ADULT T-CELL LYMPHOMA/LEUKAEMIA
     Dosage: AS USED: 150 MG/M2
     Route: 041
     Dates: start: 20080901, end: 20080901
  4. CYMERIN [Concomitant]
     Dosage: AS USED: 150 MG/M2
     Route: 041
     Dates: start: 20080828, end: 20080828
  5. PROGRAF [Concomitant]
     Dosage: AS USED: 0.4 MG
     Route: 041
     Dates: start: 20080908, end: 20080911
  6. PROGRAF [Concomitant]
     Dosage: AS USED: 0.6 MG
     Route: 041
     Dates: start: 20080905, end: 20080906
  7. CONCENTRATED RED CELLS [Concomitant]
     Indication: PACKED RED BLOOD CELL TRANSFUSION
     Route: 042
     Dates: start: 20080903, end: 20080913
  8. PLATELETS [Concomitant]
     Indication: PLATELET TRANSFUSION
     Route: 042
     Dates: start: 20080903, end: 20080916

REACTIONS (3)
  - ACUTE GRAFT VERSUS HOST DISEASE [None]
  - RENAL FAILURE ACUTE [None]
  - SEPSIS [None]
